FAERS Safety Report 20567483 (Version 1)
Quarter: 2022Q1

REPORT INFORMATION
  Report Type: Spontaneous
  Country: SE (occurrence: SE)
  Receive Date: 20220308
  Receipt Date: 20220308
  Transmission Date: 20220424
  Serious: Yes (Other)
  Sender: FDA-Public Use
  Company Number: None

PATIENT
  Age: 34 Year
  Sex: Female
  Weight: 54 kg

DRUGS (8)
  1. ORKAMBI [Suspect]
     Active Substance: IVACAFTOR\LUMACAFTOR
     Indication: Cystic fibrosis
     Dosage: 200 MG/125 MG 2X2
     Route: 048
     Dates: start: 20210615, end: 20210923
  2. ACETYLCYSTEINE [Concomitant]
     Active Substance: ACETYLCYSTEINE
     Dosage: 1A FARMA 200 MG EFFERVESCENT TABLET; 400 MG, BID (200 MG 2X2)
     Route: 048
     Dates: start: 20130101
  3. CHOLECALCIFEROL [Concomitant]
     Active Substance: CHOLECALCIFEROL
     Dosage: 800 INTERNATIONAL UNIT TABLET, BID
     Route: 048
     Dates: start: 20130101
  4. SYMBICORT [Concomitant]
     Active Substance: BUDESONIDE\FORMOTEROL FUMARATE DIHYDRATE
     Dosage: INHALATION POWDER, 320 MICROGRAMS/9 MICROGRAMS/INHALATION 2X2
     Route: 055
     Dates: start: 20130101
  5. URSODIOL [Concomitant]
     Active Substance: URSODIOL
     Dosage: HARD CAPSULE, 250 MG 2+0+3
     Route: 048
     Dates: start: 20130101
  6. CREON [Concomitant]
     Active Substance: PANCRELIPASE AMYLASE\PANCRELIPASE LIPASE\PANCRELIPASE PROTEASE
     Dosage: GASTRO-RESISTANT CAPSULE, HARD, 2 DOSAGE FORM, QID
     Route: 048
     Dates: start: 20130101
  7. .ALPHA.-TOCOPHEROL ACETATE [Concomitant]
     Active Substance: .ALPHA.-TOCOPHEROL ACETATE
     Dosage: CAPSULE, SOFT, 200 MG, QD
     Route: 048
     Dates: start: 20130101
  8. PULMOZYME [Concomitant]
     Active Substance: DORNASE ALFA
     Dosage: NEBULISER SOLUTION, 1 MG/ML 2.5X1
     Route: 055
     Dates: start: 20200826

REACTIONS (3)
  - Abdominal pain [Recovered/Resolved]
  - Chest discomfort [Recovered/Resolved]
  - Laryngitis [Recovered/Resolved]

NARRATIVE: CASE EVENT DATE: 20210615
